FAERS Safety Report 9379246 (Version 5)
Quarter: 2013Q4

REPORT INFORMATION
  Report Type: Spontaneous
  Country: GB (occurrence: GB)
  Receive Date: 20130702
  Receipt Date: 20131112
  Transmission Date: 20140711
  Serious: Yes (Other)
  Sender: FDA-Public Use
  Company Number: GB-JNJFOC-20130615874

PATIENT
  Age: 55 Year
  Sex: Female

DRUGS (2)
  1. DAKTARIN [Suspect]
     Route: 061
  2. DAKTARIN [Suspect]
     Indication: FUNGAL INFECTION
     Route: 061
     Dates: start: 20130614, end: 20130619

REACTIONS (1)
  - Cellulitis [Recovered/Resolved]
